FAERS Safety Report 8268629 (Version 3)
Quarter: 2013Q4

REPORT INFORMATION
  Report Type: Report from Study
  Country: AU (occurrence: AU)
  Receive Date: 20111130
  Receipt Date: 20131121
  Transmission Date: 20140711
  Serious: Yes (Other)
  Sender: FDA-Public Use
  Company Number: PHHY2011AU102848

PATIENT
  Age: 61 Year
  Sex: Male

DRUGS (2)
  1. CLOZARIL [Suspect]
     Dosage: 125 MG, UNK
     Dates: start: 19950922, end: 20061218
  2. CLOZARIL [Suspect]
     Dosage: UNK UKN, UNK

REACTIONS (6)
  - Hepatitis C [Unknown]
  - Splenomegaly [Unknown]
  - Upper respiratory tract infection [Unknown]
  - Neutropenia [Recovered/Resolved]
  - Leukopenia [Recovered/Resolved]
  - Platelet count decreased [Not Recovered/Not Resolved]
